FAERS Safety Report 4675714-9 (Version None)
Quarter: 2005Q2

REPORT INFORMATION
  Report Type: 
  Country: None (occurrence: None)
  Receive Date: 20050527
  Receipt Date: 20050214
  Transmission Date: 20051028
  Serious: No
  Sender: FDA-Public Use
  Company Number: US-BRISTOL-MYERS SQUIBB COMPANY-12861829

PATIENT
  Age: 6 Decade
  Sex: Female

DRUGS (6)
  1. ERBITUX [Suspect]
     Indication: COLORECTAL CANCER METASTATIC
     Dates: start: 20050101
  2. BENADRYL [Concomitant]
     Indication: PREMEDICATION
     Dates: start: 20050101
  3. DITROPAN XL [Concomitant]
  4. FLUOROURACIL [Concomitant]
  5. FOLINIC ACID [Concomitant]
  6. IRINOTECAN [Concomitant]

REACTIONS (1)
  - FLUID RETENTION [None]
